FAERS Safety Report 17266592 (Version 1)
Quarter: 2020Q1

REPORT INFORMATION
  Report Type: Spontaneous
  Country: CN (occurrence: CN)
  Receive Date: 20200114
  Receipt Date: 20200114
  Transmission Date: 20200409
  Serious: Yes (Hospitalization)
  Sender: FDA-Public Use
  Company Number: CN-GLAXOSMITHKLINE-CN2020APC004180

PATIENT

DRUGS (1)
  1. SERETIDE [Suspect]
     Active Substance: FLUTICASONE PROPIONATE\SALMETEROL XINAFOATE
     Indication: ASTHMA
     Dosage: UNK UNK, BID
     Route: 055

REACTIONS (5)
  - Inappropriate schedule of product administration [Unknown]
  - Dyspnoea [Unknown]
  - Drug ineffective [Unknown]
  - Incorrect dose administered [Unknown]
  - Condition aggravated [Unknown]
